FAERS Safety Report 18201769 (Version 2)
Quarter: 2020Q3

REPORT INFORMATION
  Report Type: Report from Study
  Country: JP (occurrence: JP)
  Receive Date: 20200827
  Receipt Date: 20200930
  Transmission Date: 20201103
  Serious: Yes (Other)
  Sender: FDA-Public Use
  Company Number: JP-ASTELLAS-2019JP022170

PATIENT
  Age: 58 Year
  Sex: Female
  Weight: 57 kg

DRUGS (7)
  1. ASP2215 [Suspect]
     Active Substance: GILTERITINIB
     Dosage: 40 MG, ONCE DAILY, ON MONDAY, WEDNESDAY, FRIDAY
     Route: 048
     Dates: start: 20191218, end: 20200124
  2. FEBURIC [Concomitant]
     Active Substance: FEBUXOSTAT
     Indication: HYPERURICAEMIA
     Dosage: 10 MG/DAY, UNKNOWN FREQ.
     Route: 048
  3. ASP2215 [Suspect]
     Active Substance: GILTERITINIB
     Route: 048
     Dates: start: 20191113, end: 20191216
  4. TRESIBA [Concomitant]
     Active Substance: INSULIN DEGLUDEC
     Indication: DIABETES MELLITUS
     Dosage: 6 IU/DAY, UNKNOWN FREQ., IN THE MORNING
     Route: 050
  5. DAIPHEN [Concomitant]
     Active Substance: SULFAMETHOXAZOLE\TRIMETHOPRIM
     Indication: PROPHYLAXIS
     Dosage: 0.5 G/DAY, UNKNOWN FREQ.
     Route: 048
  6. ASP2215 [Suspect]
     Active Substance: GILTERITINIB
     Indication: ACUTE MYELOID LEUKAEMIA REFRACTORY
     Route: 048
     Dates: start: 20190927, end: 20191003
  7. PRAVASTATIN NA [Concomitant]
     Active Substance: PRAVASTATIN SODIUM
     Indication: DYSLIPIDAEMIA
     Dosage: 10 MG/DAY, UNKNOWN FREQ.
     Route: 048

REACTIONS (2)
  - Platelet count decreased [Recovering/Resolving]
  - Neutrophil count decreased [Recovered/Resolved]

NARRATIVE: CASE EVENT DATE: 20191003
